FAERS Safety Report 12892066 (Version 3)
Quarter: 2018Q2

REPORT INFORMATION
  Report Type: Spontaneous
  Country: GB (occurrence: GB)
  Receive Date: 20161028
  Receipt Date: 20180625
  Transmission Date: 20180711
  Serious: Yes (Life-Threatening, Hospitalization)
  Sender: FDA-Public Use
  Company Number: GB-SUN PHARMACEUTICAL INDUSTRIES LTD-2016RR-126467

PATIENT
  Age: 52 Year
  Sex: Female
  Weight: 80 kg

DRUGS (2)
  1. OLANZAPINE. [Suspect]
     Active Substance: OLANZAPINE
     Indication: BIPOLAR DISORDER
     Dosage: DOSE WAS PREVIOUSLY 10MG DAILY (FOR A FEW YEARS). TITRATED UP TO 15MG.
     Route: 048
     Dates: end: 20160809
  2. ARIPIPRAZOLE. [Suspect]
     Active Substance: ARIPIPRAZOLE
     Indication: BIPOLAR DISORDER
     Dosage: DOSE WAS REDUCED TO 5MG AND THEN RE-TITRATED UP TO 15MG
     Route: 048
     Dates: end: 20160809

REACTIONS (9)
  - Vaginal haemorrhage [Unknown]
  - Adrenal mass [Unknown]
  - Acute kidney injury [Unknown]
  - Keratitis [Unknown]
  - Uterine leiomyoma [Unknown]
  - Acute psychosis [Unknown]
  - Hypotension [Unknown]
  - Neuroleptic malignant syndrome [Recovered/Resolved]
  - Abnormal behaviour [Unknown]

NARRATIVE: CASE EVENT DATE: 20160809
